FAERS Safety Report 10037385 (Version 2)
Quarter: 2014Q2

REPORT INFORMATION
  Report Type: Spontaneous
  Country: GB (occurrence: GB)
  Receive Date: 20140326
  Receipt Date: 20140424
  Transmission Date: 20141212
  Serious: Yes (Other)
  Sender: FDA-Public Use
  Company Number: GB-ACCORD-022755

PATIENT
  Sex: Female

DRUGS (2)
  1. OMEPRAZOLE [Concomitant]
     Indication: PRODUCT USED FOR UNKNOWN INDICATION
  2. ANASTRAZOLE ACCORD [Suspect]
     Indication: PRODUCT USED FOR UNKNOWN INDICATION
     Dosage: EXP DATE:05/2015?ANASTAZOLE PACK NO:1040431625896
     Dates: start: 20130805

REACTIONS (9)
  - Abdominal pain [Unknown]
  - Flushing [Unknown]
  - Product substitution issue [Unknown]
  - Myalgia [Not Recovered/Not Resolved]
  - Burning sensation [Not Recovered/Not Resolved]
  - Bedridden [Not Recovered/Not Resolved]
  - Gait disturbance [Not Recovered/Not Resolved]
  - Faecal incontinence [Not Recovered/Not Resolved]
  - Reflux gastritis [Unknown]
